FAERS Safety Report 25613748 (Version 1)
Quarter: 2025Q3

REPORT INFORMATION
  Report Type: Report from Study
  Country: GB (occurrence: GB)
  Receive Date: 20250728
  Receipt Date: 20250728
  Transmission Date: 20251021
  Serious: Yes (Other)
  Sender: UCB
  Company Number: GB-UCBSA-2025029077

PATIENT
  Age: 49 Year
  Sex: Male
  Weight: 101 kg

DRUGS (3)
  1. BIMEKIZUMAB [Suspect]
     Active Substance: BIMEKIZUMAB
     Indication: Psoriasis
  2. ALBUTEROL [Concomitant]
     Active Substance: ALBUTEROL
     Indication: Asthma
     Dosage: 100 MICROGRAM, 2X/DAY (BID)
     Route: 048
     Dates: start: 20250408
  3. BECLOMETHASONE DIPROPIONATE [Concomitant]
     Active Substance: BECLOMETHASONE DIPROPIONATE
     Indication: Asthma
     Dosage: 100 MICROGRAM, 2X/DAY (BID)
     Route: 048
     Dates: start: 20250408

REACTIONS (6)
  - Type 2 diabetes mellitus [Not Recovered/Not Resolved]
  - Arteriosclerosis coronary artery [Not Recovered/Not Resolved]
  - Hypertension [Not Recovered/Not Resolved]
  - Lower respiratory tract infection [Recovered/Resolved]
  - Limb injury [Not Recovered/Not Resolved]
  - Localised infection [Not Recovered/Not Resolved]

NARRATIVE: CASE EVENT DATE: 20241230
